FAERS Safety Report 7480499-7 (Version None)
Quarter: 2011Q2

REPORT INFORMATION
  Report Type: 
  Country: None (occurrence: None)
  Receive Date: 20110516
  Receipt Date: 20110503
  Transmission Date: 20111010
  Serious: Yes (Other)
  Sender: FDA-Public Use
  Company Number: US-EISAI INC-E3810-04657-SPO-US

PATIENT
  Sex: Female

DRUGS (2)
  1. ACIPHEX [Suspect]
     Dosage: UNKNOWN
     Route: 048
  2. PREDNISONE [Suspect]
     Dosage: UNKNOWN
     Route: 065

REACTIONS (1)
  - TENDON DISORDER [None]
